FAERS Safety Report 19080413 (Version 1)
Quarter: 2021Q2

REPORT INFORMATION
  Report Type: Spontaneous
  Country: US (occurrence: US)
  Receive Date: 20210401
  Receipt Date: 20210401
  Transmission Date: 20210717
  Serious: No
  Sender: FDA-Public Use
  Company Number: US-ELI_LILLY_AND_COMPANY-US202103001742

PATIENT
  Sex: Female

DRUGS (3)
  1. NOVOLOG [Concomitant]
     Active Substance: INSULIN ASPART
     Indication: TYPE 2 DIABETES MELLITUS
     Dosage: 12 U, TID WITH NMEAL
  2. BASAGLAR [Suspect]
     Active Substance: INSULIN GLARGINE
     Indication: TYPE 2 DIABETES MELLITUS
     Dosage: 30 U, DAILY NIGHT
     Route: 058
     Dates: start: 2018
  3. BASAGLAR [Suspect]
     Active Substance: INSULIN GLARGINE
     Dosage: 30 U, DAILY NIGHT
     Route: 058

REACTIONS (13)
  - Asthenia [Unknown]
  - Choking [Not Recovered/Not Resolved]
  - Lung disorder [Not Recovered/Not Resolved]
  - Dizziness [Unknown]
  - Blood glucose abnormal [Not Recovered/Not Resolved]
  - Nausea [Unknown]
  - Burning sensation [Not Recovered/Not Resolved]
  - Incorrect dose administered [Not Recovered/Not Resolved]
  - Gait disturbance [Not Recovered/Not Resolved]
  - Cough [Not Recovered/Not Resolved]
  - Fall [Unknown]
  - Dysstasia [Not Recovered/Not Resolved]
  - Pruritus [Unknown]
